FAERS Safety Report 20645047 (Version 1)
Quarter: 2022Q1

REPORT INFORMATION
  Report Type: Spontaneous
  Country: US (occurrence: None)
  Receive Date: 20220328
  Receipt Date: 20220328
  Transmission Date: 20220423
  Serious: Yes (unspecified)
  Sender: FDA-Public Use
  Company Number: None

PATIENT
  Age: 29 Year
  Sex: Male
  Weight: 79 kg

DRUGS (3)
  1. STELARA [Suspect]
     Active Substance: USTEKINUMAB
     Indication: Colitis ulcerative
     Dosage: OTHER FREQUENCY : ONE TIME INFUSION;?
     Route: 041
     Dates: start: 20220325, end: 20220325
  2. Diphenhydramine 25 mg IVP [Concomitant]
     Dates: start: 20220325, end: 20220325
  3. Acetaminophen 650 mg PO [Concomitant]
     Dates: start: 20220325, end: 20220325

REACTIONS (4)
  - Feeling hot [None]
  - Infusion related reaction [None]
  - Flushing [None]
  - Blood pressure increased [None]

NARRATIVE: CASE EVENT DATE: 20220325
